FAERS Safety Report 9549707 (Version 1)
Quarter: 2013Q3

REPORT INFORMATION
  Report Type: Spontaneous
  Country: FR (occurrence: FR)
  Receive Date: 20130924
  Receipt Date: 20130924
  Transmission Date: 20140515
  Serious: Yes (Hospitalization, Other)
  Sender: FDA-Public Use
  Company Number: FR-ABBVIE-13P-056-1149124-00

PATIENT
  Age: 34 Year
  Sex: Male

DRUGS (6)
  1. ULTANE [Suspect]
     Indication: ANAESTHESIA
     Dosage: SINGLE INTAKE
     Route: 055
     Dates: start: 20130211, end: 20130211
  2. CEFAZOLINE PANPHARMA [Suspect]
     Indication: ANTIBIOTIC PROPHYLAXIS
     Dosage: SINGLE INTAKE
     Route: 042
     Dates: start: 20130211, end: 20130211
  3. DIPRIVAN [Suspect]
     Indication: ANAESTHESIA
     Dosage: SINGLE INTAKE
     Route: 042
     Dates: start: 20130211, end: 20130211
  4. SUFENTA [Suspect]
     Indication: ANAESTHESIA
     Dosage: SINGLE INTAKE
     Route: 042
     Dates: start: 20130211, end: 20130211
  5. TRACRIUM [Suspect]
     Indication: ANAESTHESIA
     Route: 042
     Dates: start: 20130211, end: 20130211
  6. KETAMINE PANPHARMA [Suspect]
     Indication: PRODUCT USED FOR UNKNOWN INDICATION

REACTIONS (3)
  - Circulatory collapse [Recovered/Resolved]
  - Rash erythematous [Recovered/Resolved]
  - Tachycardia [Recovered/Resolved]
